FAERS Safety Report 9384537 (Version 3)
Quarter: 2014Q1

REPORT INFORMATION
  Report Type: Spontaneous
  Country: ES (occurrence: ES)
  Receive Date: 20130705
  Receipt Date: 20140227
  Transmission Date: 20141002
  Serious: Yes (Other)
  Sender: FDA-Public Use
  Company Number: ES-UCBSA-090874

PATIENT
  Age: 40 Year
  Sex: Female
  Weight: 55 kg

DRUGS (9)
  1. CIMZIA [Suspect]
     Indication: RHEUMATOID ARTHRITIS
     Dosage: UNKNOWN
     Dates: start: 20120727, end: 2012
  2. CIMZIA [Suspect]
     Indication: RHEUMATOID ARTHRITIS
     Dates: start: 201212, end: 201306
  3. PREDNISONE [Concomitant]
     Dates: start: 201111, end: 201306
  4. METHOTREXATE [Concomitant]
     Dates: start: 201110, end: 201306
  5. METHOTREXATE [Concomitant]
     Dates: start: 201309
  6. METHOTREXATE [Concomitant]
     Dates: start: 200203, end: 2005
  7. CALCIUM 500MG + 400 VITAMIN D [Concomitant]
     Dosage: 1/DAY
     Dates: start: 201106
  8. QLAIRA [Concomitant]
     Dosage: 1 COMP/DAY
     Dates: start: 201208, end: 201306
  9. QLAIRA [Concomitant]
     Dosage: 1 COMP/DAY
     Dates: start: 201208, end: 201306

REACTIONS (1)
  - Endometrial adenocarcinoma [Recovering/Resolving]
